FAERS Safety Report 5643345-X (Version None)
Quarter: 2008Q1

REPORT INFORMATION
  Report Type: 
  Country: None (occurrence: None)
  Receive Date: 20080228
  Receipt Date: 20080226
  Transmission Date: 20080703
  Serious: Yes (Hospitalization)
  Sender: FDA-Public Use
  Company Number: CN-ASTRAZENECA-2008AP01395

PATIENT
  Age: 80 Year
  Sex: Male

DRUGS (3)
  1. LISINOPRIL [Suspect]
     Indication: HYPERTENSION
     Route: 048
     Dates: start: 20070306, end: 20070312
  2. PIPERAZINE FERULATE [Concomitant]
     Indication: NEPHROPATHY
     Route: 048
     Dates: start: 20070306
  3. ALDEHYDE OXYSTARCH GRANULES [Concomitant]
     Indication: NEPHROPATHY
     Route: 048
     Dates: start: 20070306

REACTIONS (2)
  - RASH PRURITIC [None]
  - RASH VESICULAR [None]
